FAERS Safety Report 4428682-9 (Version None)
Quarter: 2004Q3

REPORT INFORMATION
  Report Type: 
  Country: None (occurrence: None)
  Receive Date: 20040818
  Receipt Date: 20031028
  Transmission Date: 20050211
  Serious: No
  Sender: FDA-Public Use
  Company Number: US-BRISTOL-MYERS SQUIBB COMPANY-12420386

PATIENT
  Age: 50 Year
  Sex: Male
  Weight: 78 kg

DRUGS (2)
  1. TEQUIN [Suspect]
     Indication: UPPER RESPIRATORY TRACT INFECTION
     Route: 048
     Dates: start: 20031014, end: 20031027
  2. TEQUIN [Suspect]
     Indication: PULMONARY CONGESTION
     Route: 048
     Dates: start: 20031014, end: 20031027

REACTIONS (1)
  - DRUG INEFFECTIVE [None]
